FAERS Safety Report 8875163 (Version 1)
Quarter: 2012Q4

REPORT INFORMATION
  Report Type: 
  Country: GB (occurrence: GB)
  Receive Date: 20121023
  Receipt Date: 20121023
  Transmission Date: 20130627
  Serious: Yes (Other)
  Sender: FDA-Public Use
  Company Number: US-MEDICIS-2012P1060966

PATIENT
  Age: 78 Year
  Sex: Female

DRUGS (2)
  1. ESTRADIOL [Suspect]
     Dates: start: 1976, end: 1990
  2. ESTRADIOL [Suspect]
     Dates: start: 1990

REACTIONS (3)
  - Intestinal obstruction [Unknown]
  - Endometrial adenocarcinoma [Unknown]
  - Metastases to lymph nodes [Unknown]
